FAERS Safety Report 6457313-1 (Version None)
Quarter: 2009Q4

REPORT INFORMATION
  Report Type: 
  Country: None (occurrence: None)
  Receive Date: 20091125
  Receipt Date: 20091117
  Transmission Date: 20100525
  Serious: Yes (Hospitalization, Disabling)
  Sender: FDA-Public Use
  Company Number: GXKR2009US12555

PATIENT
  Age: 26 Year
  Sex: Male

DRUGS (3)
  1. CLOZAPINE (NGX) [Suspect]
     Indication: SCHIZOPHRENIA, PARANOID TYPE
     Dosage: 550 MG
  2. VALPROIC ACID [Concomitant]
     Dosage: 2250 MG, UNK
  3. GLYCOPYRROLATE [Concomitant]
     Dosage: 4 MG, AT NIGHT
     Route: 048

REACTIONS (17)
  - ABDOMINAL DISTENSION [None]
  - ABDOMINAL PAIN [None]
  - ABDOMINAL RIGIDITY [None]
  - ACIDOSIS [None]
  - COAGULOPATHY [None]
  - GASTROINTESTINAL MUCOSAL NECROSIS [None]
  - HYPOTHERMIA [None]
  - INTESTINAL RESECTION [None]
  - MEGACOLON [None]
  - MUCOSAL HAEMORRHAGE [None]
  - MULTI-ORGAN FAILURE [None]
  - NAUSEA [None]
  - PULSE ABSENT [None]
  - SHOCK [None]
  - SURGERY [None]
  - TACHYCARDIA [None]
  - UNRESPONSIVE TO STIMULI [None]
